FAERS Safety Report 9179099 (Version 1)
Quarter: 2012Q4

REPORT INFORMATION
  Report Type: 
  Country: RO (occurrence: RO)
  Receive Date: 20121029
  Receipt Date: 20121029
  Transmission Date: 20130627
  Serious: Yes (Death)
  Sender: FDA-Public Use
  Company Number: RO-JNJFOC-20121013644

PATIENT
  Sex: Female

DRUGS (5)
  1. REMICADE [Suspect]
     Indication: PSORIASIS
     Route: 042
     Dates: start: 20120503, end: 20120703
  2. LEFLUNOMIDE [Concomitant]
     Route: 048
     Dates: start: 2009
  3. OLICARD [Concomitant]
     Route: 048
     Dates: start: 2007
  4. PRESTARIUM [Concomitant]
     Route: 048
     Dates: start: 2010
  5. VIMOVO [Concomitant]
     Route: 048
     Dates: start: 2012

REACTIONS (3)
  - Sepsis [Fatal]
  - Cholelithiasis [Fatal]
  - Renal failure acute [Fatal]
